FAERS Safety Report 6206149-5 (Version None)
Quarter: 2009Q2

REPORT INFORMATION
  Report Type: 
  Country: None (occurrence: None)
  Receive Date: 20090528
  Receipt Date: 20080603
  Transmission Date: 20091009
  Serious: No
  Sender: FDA-Public Use
  Company Number: US-KINGPHARMUSA00001-K200800636

PATIENT
  Sex: Male
  Weight: 104.31 kg

DRUGS (3)
  1. AVINZA [Suspect]
     Indication: NECK PAIN
     Dosage: 90 MG, QD
  2. HYDROCODONE BITARTRATE [Concomitant]
     Indication: NECK PAIN
     Dosage: 10 MG, QID
  3. HYDROCODONE BITARTRATE [Concomitant]
     Indication: BACK PAIN

REACTIONS (1)
  - DRUG INEFFECTIVE [None]
